FAERS Safety Report 4514078-8 (Version None)
Quarter: 2004Q4

REPORT INFORMATION
  Report Type: 
  Country: None (occurrence: None)
  Receive Date: 20041130
  Receipt Date: 20041001
  Transmission Date: 20050328
  Serious: Yes (Other)
  Sender: FDA-Public Use
  Company Number: DE-GLAXOSMITHKLINE-D0044866A

PATIENT
  Age: 25 Year
  Sex: Female
  Weight: 50 kg

DRUGS (2)
  1. SEROXAT [Suspect]
     Dosage: 30MG PER DAY
     Route: 065
     Dates: start: 20040701, end: 20041001
  2. ENALAPRIL [Concomitant]
     Dosage: 5MG PER DAY
     Route: 065

REACTIONS (2)
  - GLOMERULONEPHRITIS [None]
  - PROTEINURIA [None]
